FAERS Safety Report 20567123 (Version 4)
Quarter: 2024Q1

REPORT INFORMATION
  Report Type: Spontaneous
  Country: US (occurrence: US)
  Receive Date: 20220308
  Receipt Date: 20240108
  Transmission Date: 20240410
  Serious: Yes (Other)
  Sender: FDA-Public Use
  Company Number: US-PFIZER INC-202200360070

PATIENT
  Age: 90 Year
  Sex: Male
  Weight: 70.31 kg

DRUGS (4)
  1. VYNDAMAX [Suspect]
     Active Substance: TAFAMIDIS
     Indication: Cardiac disorder
     Dosage: 61 MG
     Dates: end: 20220217
  2. VYNDAMAX [Suspect]
     Active Substance: TAFAMIDIS
     Indication: Arteriosclerosis
  3. VYNDAMAX [Suspect]
     Active Substance: TAFAMIDIS
     Indication: Acquired ATTR amyloidosis
  4. GREEN TEA LEAF [Concomitant]
     Active Substance: GREEN TEA LEAF
     Dosage: 650 MG
     Route: 048
     Dates: start: 2019

REACTIONS (2)
  - Cardiac pacemaker insertion [Unknown]
  - Hypoacusis [Unknown]
